FAERS Safety Report 24609025 (Version 1)
Quarter: 2024Q4

REPORT INFORMATION
  Report Type: Spontaneous
  Country: US (occurrence: US)
  Receive Date: 20241112
  Receipt Date: 20241112
  Transmission Date: 20250114
  Serious: No
  Sender: PFIZER
  Company Number: US-PFIZER INC-PV202400145785

PATIENT
  Age: 65 Year
  Sex: Female
  Weight: 73.469 kg

DRUGS (2)
  1. IBRANCE [Suspect]
     Active Substance: PALBOCICLIB
     Indication: Breast cancer female
     Dosage: TAKE 1 TABLET DAILY FOR 21 DAYS, THEN 7 DAYS OFF, WITH OR WITHOUT FOOD
     Route: 048
  2. FASLODEX [Suspect]
     Active Substance: FULVESTRANT
     Indication: Breast cancer female
     Dosage: UNK

REACTIONS (2)
  - Upper-airway cough syndrome [Unknown]
  - Hypersensitivity [Unknown]
